FAERS Safety Report 6022363-6 (Version None)
Quarter: 2008Q4

REPORT INFORMATION
  Report Type: 
  Country: None (occurrence: None)
  Receive Date: 20081230
  Receipt Date: 20081106
  Transmission Date: 20090506
  Serious: No
  Sender: FDA-Public Use
  Company Number: US-KINGPHARMUSA00001-K200801274

PATIENT
  Sex: Male

DRUGS (1)
  1. INTAL [Suspect]
     Indication: SECRETION DISCHARGE
     Dosage: UNK

REACTIONS (1)
  - DYSPHONIA [None]
